FAERS Safety Report 25740374 (Version 1)
Quarter: 2025Q3

REPORT INFORMATION
  Report Type: Spontaneous
  Country: GB (occurrence: GB)
  Receive Date: 20250829
  Receipt Date: 20250829
  Transmission Date: 20251021
  Serious: Yes (Hospitalization)
  Sender: MYLAN
  Company Number: GB-MYLANLABS-2025M1057618

PATIENT
  Sex: Female

DRUGS (2)
  1. CLOZARIL [Suspect]
     Active Substance: CLOZAPINE
     Indication: Bipolar disorder
  2. CLOZARIL [Suspect]
     Active Substance: CLOZAPINE
     Indication: Delusion

REACTIONS (4)
  - Hospitalisation [Unknown]
  - Stent placement [Unknown]
  - Constipation [Recovering/Resolving]
  - Off label use [Unknown]
